FAERS Safety Report 23592134 (Version 1)
Quarter: 2024Q1

REPORT INFORMATION
  Report Type: Spontaneous
  Country: US (occurrence: None)
  Receive Date: 20240304
  Receipt Date: 20240304
  Transmission Date: 20240410
  Serious: Yes (Hospitalization)
  Sender: FDA-Public Use
  Company Number: None

PATIENT
  Age: 77 Year
  Sex: Male

DRUGS (1)
  1. DROXIDOPA [Suspect]
     Active Substance: DROXIDOPA
     Indication: Orthostatic hypotension
     Dosage: 600MG TWICE DAILY ORAL
     Route: 048
     Dates: start: 202209

REACTIONS (4)
  - Hypotension [None]
  - Dizziness [None]
  - Fluid intake reduced [None]
  - Therapy interrupted [None]

NARRATIVE: CASE EVENT DATE: 20240208
